FAERS Safety Report 22327329 (Version 1)
Quarter: 2023Q2

REPORT INFORMATION
  Report Type: Spontaneous
  Country: US (occurrence: US)
  Receive Date: 20230516
  Receipt Date: 20230516
  Transmission Date: 20230721
  Serious: No
  Sender: FDA-Public Use
  Company Number: US-RADIUS HEALTH INC.-2023US000447

PATIENT
  Sex: Female

DRUGS (3)
  1. TYMLOS [Suspect]
     Active Substance: ABALOPARATIDE
     Indication: Senile osteoporosis
     Dosage: 80 MICROGRAM, QD
     Route: 058
     Dates: start: 202205
  2. FUROSEMIDE [Suspect]
     Active Substance: FUROSEMIDE
     Indication: Diuretic therapy
  3. SPIRONOLACTONE [Suspect]
     Active Substance: SPIRONOLACTONE
     Indication: Diuretic therapy

REACTIONS (3)
  - Blood urea increased [Unknown]
  - Glomerular filtration rate decreased [Unknown]
  - Blood calcium increased [Unknown]
